FAERS Safety Report 6804589-4 (Version None)
Quarter: 2010Q2

REPORT INFORMATION
  Report Type: 
  Country: None (occurrence: None)
  Receive Date: 20100628
  Receipt Date: 20070423
  Transmission Date: 20101027
  Serious: No
  Sender: FDA-Public Use
  Company Number: US-PFIZER INC-2007033579

PATIENT
  Sex: Male
  Weight: 99.3 kg

DRUGS (8)
  1. SUTENT [Suspect]
     Indication: RENAL CELL CARCINOMA
     Dates: start: 20070322
  2. LABETALOL HCL [Concomitant]
     Indication: BLOOD PRESSURE
  3. WARFARIN SODIUM [Concomitant]
     Indication: THROMBOSIS
  4. GLUCOPHAGE [Concomitant]
  5. ACIPHEX [Concomitant]
  6. FLEXERIL [Concomitant]
     Indication: MUSCLE SPASMS
  7. CALCIUM CARBONATE [Concomitant]
  8. MAGNESIUM [Concomitant]

REACTIONS (3)
  - BLOOD CREATININE INCREASED [None]
  - JOINT SWELLING [None]
  - OEDEMA PERIPHERAL [None]
